FAERS Safety Report 15402445 (Version 1)
Quarter: 2018Q3

REPORT INFORMATION
  Report Type: Spontaneous
  Country: TW (occurrence: TW)
  Receive Date: 20180919
  Receipt Date: 20180919
  Transmission Date: 20181010
  Serious: Yes (Death, Life-Threatening, Hospitalization, Other)
  Sender: FDA-Public Use
  Company Number: PHHY2018TW095284

PATIENT
  Age: 46 Year
  Sex: Female

DRUGS (5)
  1. RITUXIMAB. [Concomitant]
     Active Substance: RITUXIMAB
     Indication: DERMATOMYOSITIS
     Route: 065
  2. METHYLPREDNISOLONE. [Suspect]
     Active Substance: METHYLPREDNISOLONE
     Indication: DERMATOMYOSITIS
     Dosage: 6 MG, UNK
     Route: 048
  3. METHYLPREDNISOLONE. [Suspect]
     Active Substance: METHYLPREDNISOLONE
     Dosage: UNK
     Route: 042
  4. CICLOSPORIN [Concomitant]
     Active Substance: CYCLOSPORINE
     Indication: DERMATOMYOSITIS
     Route: 065
  5. MYCOPHENOLATE MOFETIL. [Concomitant]
     Active Substance: MYCOPHENOLATE MOFETIL
     Indication: DERMATOMYOSITIS
     Dosage: 1500 MG, UNK
     Route: 065

REACTIONS (10)
  - Respiratory muscle weakness [Not Recovered/Not Resolved]
  - Upper gastrointestinal haemorrhage [Fatal]
  - Circulatory collapse [Fatal]
  - Cardiac arrest [Fatal]
  - Hypovolaemic shock [Not Recovered/Not Resolved]
  - Oesophagitis [Not Recovered/Not Resolved]
  - Haemoglobin decreased [Not Recovered/Not Resolved]
  - Aorto-oesophageal fistula [Fatal]
  - Oesophageal ulcer haemorrhage [Not Recovered/Not Resolved]
  - Faeces discoloured [Not Recovered/Not Resolved]
